FAERS Safety Report 8099978-7 (Version None)
Quarter: 2012Q1

REPORT INFORMATION
  Report Type: 
  Country: None (occurrence: None)
  Receive Date: 20120129
  Receipt Date: 20111126
  Transmission Date: 20120608
  Serious: No
  Sender: FDA-Public Use
  Company Number: US-ABBOTT-11P-163-0878725-00

PATIENT
  Age: 54 Year
  Sex: Female

DRUGS (10)
  1. MAXZIDE [Concomitant]
     Indication: HYPERTENSION
     Dosage: 25 MG, DAILY
  2. METHADONE HCL [Concomitant]
     Indication: ARTHRALGIA
  3. VALIUM [Concomitant]
     Indication: ANXIETY
     Dosage: 3-4 TIMES DAILY, AS REQUIRED
  4. SULFASALAZINE [Concomitant]
     Indication: RHEUMATOID ARTHRITIS
  5. ALBUTEROL [Concomitant]
     Indication: ASTHMA
  6. ADVAIR DISKUS 100/50 [Concomitant]
     Indication: ASTHMA
  7. HUMIRA [Suspect]
     Indication: RHEUMATOID ARTHRITIS
     Dates: start: 20111124
  8. LANSOPRAZOLE [Concomitant]
     Indication: GASTROOESOPHAGEAL REFLUX DISEASE
     Dosage: 30 MG, DAILY
  9. PREDNISONE TAB [Concomitant]
     Indication: RHEUMATOID ARTHRITIS
     Dosage: 13 MG, DAILY
  10. ZOLOFT [Concomitant]
     Indication: DEPRESSION
     Dosage: 50 MG, DAILY

REACTIONS (2)
  - DIZZINESS [None]
  - FATIGUE [None]
